FAERS Safety Report 23045243 (Version 4)
Quarter: 2023Q4

REPORT INFORMATION
  Report Type: Spontaneous
  Country: US (occurrence: US)
  Receive Date: 20231009
  Receipt Date: 20231030
  Transmission Date: 20240109
  Serious: No
  Sender: FDA-Public Use
  Company Number: US-PFIZER INC-2020320668

PATIENT
  Age: 61 Year
  Sex: Female
  Weight: 86.18 kg

DRUGS (7)
  1. NARDIL [Suspect]
     Active Substance: PHENELZINE SULFATE
     Indication: Depression
     Dosage: UNK, 4X/DAY
  2. NARDIL [Suspect]
     Active Substance: PHENELZINE SULFATE
     Indication: Dysphagia
     Dosage: 15 MG
  3. NARDIL [Suspect]
     Active Substance: PHENELZINE SULFATE
     Indication: Anxiety
  4. NARDIL [Suspect]
     Active Substance: PHENELZINE SULFATE
     Indication: Major depression
  5. NARDIL [Suspect]
     Active Substance: PHENELZINE SULFATE
     Indication: Agoraphobia
  6. NARDIL [Suspect]
     Active Substance: PHENELZINE SULFATE
     Indication: Panic attack
  7. CLONAZEPAM [Concomitant]
     Active Substance: CLONAZEPAM
     Indication: Depression
     Dosage: UNK

REACTIONS (2)
  - Dyspnoea [Unknown]
  - Off label use [Unknown]
